FAERS Safety Report 9971793 (Version 1)
Quarter: 2014Q1

REPORT INFORMATION
  Report Type: Spontaneous
  Country: DE (occurrence: None)
  Receive Date: 20140305
  Receipt Date: 20140305
  Transmission Date: 20141002
  Serious: Yes (Life-Threatening, Hospitalization, Other)
  Sender: FDA-Public Use
  Company Number: None

PATIENT
  Age: 50 Year
  Sex: Male
  Weight: 78 kg

DRUGS (2)
  1. EFFIENT [Suspect]
     Indication: CORONARY ARTERIAL STENT INSERTION
     Dosage: 1 PIL
     Route: 048
     Dates: start: 20130801, end: 20140114
  2. EFFIENT [Suspect]
     Indication: MYOCARDIAL INFARCTION
     Dosage: 1 PIL
     Route: 048
     Dates: start: 20130801, end: 20140114

REACTIONS (2)
  - Haematemesis [None]
  - Gastric cancer [None]
